FAERS Safety Report 9136812 (Version 1)
Quarter: 2013Q1

REPORT INFORMATION
  Report Type: Spontaneous
  Country: US (occurrence: US)
  Receive Date: 20130304
  Receipt Date: 20130304
  Transmission Date: 20140127
  Serious: No
  Sender: FDA-Public Use
  Company Number: US-ABBOTT-12P-163-0958651-00

PATIENT
  Sex: Male
  Weight: 127.12 kg

DRUGS (10)
  1. ANDROGEL 1% [Suspect]
     Indication: BLOOD TESTOSTERONE DECREASED
     Route: 061
  2. ANDROGEL 1% [Suspect]
     Route: 061
  3. ANDROGEL 1% [Suspect]
     Route: 061
  4. SYNTHROID [Concomitant]
     Indication: HYPOTHYROIDISM
  5. SINGULAIR [Concomitant]
     Indication: SINUSITIS
  6. CLARINEX [Concomitant]
     Indication: HYPERSENSITIVITY
  7. INNOTRAN [Concomitant]
     Indication: MIGRAINE
  8. NEXIUM [Concomitant]
     Indication: GASTROOESOPHAGEAL REFLUX DISEASE
  9. RANITIDINE [Concomitant]
     Indication: GASTROOESOPHAGEAL REFLUX DISEASE
  10. VIT D [Concomitant]
     Indication: PRODUCT USED FOR UNKNOWN INDICATION

REACTIONS (3)
  - Blood testosterone abnormal [Not Recovered/Not Resolved]
  - Blood testosterone decreased [Unknown]
  - Blood testosterone increased [Unknown]
